FAERS Safety Report 22348473 (Version 1)
Quarter: 2023Q2

REPORT INFORMATION
  Report Type: Other
  Country: US (occurrence: None)
  Receive Date: 20230522
  Receipt Date: 20230522
  Transmission Date: 20230722
  Serious: Yes (Hospitalization)
  Sender: FDA-Public Use
  Company Number: US-ROCHE-3352997

PATIENT
  Age: 1 Year
  Sex: Male
  Weight: 10.6 kg

DRUGS (1)
  1. EVRYSDI [Suspect]
     Active Substance: RISDIPLAM
     Indication: Spinal muscular atrophy
     Dosage: STRENGTH: 0.75 MG/ML 80 ML, DOSE: 2 ML?EXPECTED THERAPY START DATE: 31/DEC/2021
     Route: 048

REACTIONS (2)
  - Pyrexia [Unknown]
  - Cellulitis [Unknown]
